FAERS Safety Report 4433405-3 (Version None)
Quarter: 2004Q3

REPORT INFORMATION
  Report Type: 
  Country: None (occurrence: None)
  Receive Date: 20040824
  Receipt Date: 20040811
  Transmission Date: 20050211
  Serious: Yes (Other)
  Sender: FDA-Public Use
  Company Number: 200410793BVD

PATIENT
  Age: 84 Year
  Sex: Female
  Weight: 51 kg

DRUGS (3)
  1. AVELOX [Suspect]
     Indication: PNEUMONIA
     Dosage: UNK
     Route: 065
     Dates: start: 20030801
  2. AVELOX [Suspect]
     Indication: PNEUMONIA
     Dosage: UNK
     Route: 065
     Dates: start: 20031201
  3. CITALOPRAM [Suspect]
     Indication: DEPRESSION
     Dosage: ORAL
     Route: 048
     Dates: start: 20040101, end: 20040501

REACTIONS (2)
  - ANAEMIA [None]
  - NEPHRITIS INTERSTITIAL [None]
